FAERS Safety Report 7550788-6 (Version None)
Quarter: 2011Q2

REPORT INFORMATION
  Report Type: 
  Country: None (occurrence: None)
  Receive Date: 20110616
  Receipt Date: 20110610
  Transmission Date: 20111010
  Serious: Yes (Other)
  Sender: FDA-Public Use
  Company Number: DE-JNJFOC-20110604128

PATIENT
  Age: 70 Year
  Sex: Female

DRUGS (1)
  1. TAPENTADOL [Suspect]
     Indication: PRODUCT USED FOR UNKNOWN INDICATION
     Route: 048
     Dates: start: 20101012, end: 20110203

REACTIONS (6)
  - FALL [None]
  - VERTIGO [None]
  - DRY MOUTH [None]
  - ERYTHEMA [None]
  - SYNCOPE [None]
  - CONSTIPATION [None]
